FAERS Safety Report 4355435-2 (Version None)
Quarter: 2004Q2

REPORT INFORMATION
  Report Type: 
  Country: None (occurrence: None)
  Receive Date: 20040504
  Receipt Date: 20040421
  Transmission Date: 20050107
  Serious: Yes (Hospitalization)
  Sender: FDA-Public Use
  Company Number: 2004027822

PATIENT
  Age: 73 Year
  Sex: Female

DRUGS (11)
  1. AMLODIPINE [Suspect]
     Indication: HYPERTENSION
     Dosage: 5 MG (DAILY), ORAL
     Route: 048
     Dates: start: 20031024, end: 20031108
  2. SYMBICOT TURBUHALER ^DRAC0^ (BUDESONIDE, FORMOTEROL FUMARATE) [Suspect]
     Indication: ASTHMA
     Dosage: 320 MCG, INHALATION
     Route: 055
     Dates: start: 20030320
  3. NORMACOL (FRANGULA EXTRACT STERCULIA) [Concomitant]
  4. AZELASTINE HYDROCHLORIDE (AZELASTINE HYDROCHLORIDE) [Concomitant]
  5. APOREX (DEXTROPROPOXYPHENE HYDROCHLORIDE, PARACETAMOL) [Concomitant]
  6. NAVISPARE (AMILORIDE HYDROCHLORIDE, PARACETAMOL) [Concomitant]
  7. CODEINE PHOSPHATE (CODEINE PHOSPHATE) [Concomitant]
  8. PERINDOPRIL (PERINDOPRIL) [Concomitant]
  9. PROCHLORPERAZINE [Concomitant]
  10. CYCLOPENTHIAZIDE (CYCLOPENTHIAZIDE [Concomitant]
  11. AMILORIDE (AMILORIDE) [Concomitant]

REACTIONS (1)
  - DIZZINESS [None]
